FAERS Safety Report 15235246 (Version 7)
Quarter: 2021Q1

REPORT INFORMATION
  Report Type: Spontaneous
  Country: CO (occurrence: CO)
  Receive Date: 20180803
  Receipt Date: 20210201
  Transmission Date: 20210419
  Serious: Yes (Disabling, Other)
  Sender: FDA-Public Use
  Company Number: CO-REGENERON PHARMACEUTICALS, INC.-2018-32172

PATIENT

DRUGS (19)
  1. EYLEA [Suspect]
     Active Substance: AFLIBERCEPT
     Dosage: 1 DF, ONCE; LEFT EYE
     Route: 031
     Dates: start: 20161113, end: 20161113
  2. EYLEA [Suspect]
     Active Substance: AFLIBERCEPT
     Dosage: 1 DF, ONCE; LEFT EYE
     Route: 031
     Dates: start: 20160517, end: 20160517
  3. EYLEA [Suspect]
     Active Substance: AFLIBERCEPT
     Dosage: 1 DF, ONCE; LEFT EYE
     Route: 031
     Dates: start: 20160705, end: 20160705
  4. EYLEA [Suspect]
     Active Substance: AFLIBERCEPT
     Dosage: 1 DF, ONCE
     Route: 031
     Dates: start: 20171207, end: 20171207
  5. EYLEA [Suspect]
     Active Substance: AFLIBERCEPT
     Dosage: 100 ?L, ONCE; OU; TOTAL OF 7 INJ. ON OS AND 2 ON OD, PRIOR TO THE EVENT (INCLUDING THIS ONE)
     Route: 031
     Dates: start: 20180712, end: 20180712
  6. EYLEA [Suspect]
     Active Substance: AFLIBERCEPT
     Dosage: 1 DF, ONCE; LEFT EYE
     Route: 031
     Dates: start: 20160112, end: 20160112
  7. LEVOTHYROXINE. [Concomitant]
     Active Substance: LEVOTHYROXINE
     Indication: HYPOTHYROIDISM
     Dosage: 50 ?G, QD
  8. METOPROLOL. [Concomitant]
     Active Substance: METOPROLOL
     Dosage: 25 MG, BID
  9. EYLEA [Suspect]
     Active Substance: AFLIBERCEPT
     Dosage: 1 DF, ONCE; LEFT EYE
     Route: 031
     Dates: start: 20160906, end: 20160906
  10. EYLEA [Suspect]
     Active Substance: AFLIBERCEPT
     Dosage: 1 DF, ONCE; BOTH EYES
     Route: 031
     Dates: start: 20171220, end: 20171220
  11. EYLEA [Suspect]
     Active Substance: AFLIBERCEPT
     Dosage: 1 DF, ONCE; LEFT EYE
     Route: 031
     Dates: start: 20170105, end: 20170105
  12. EYLEA [Suspect]
     Active Substance: AFLIBERCEPT
     Dosage: 1 DF, ONCE; BOTH EYES
     Route: 031
     Dates: start: 20171124, end: 20171124
  13. EYLEA [Suspect]
     Active Substance: AFLIBERCEPT
     Indication: AGE-RELATED MACULAR DEGENERATION
     Dosage: 1 DF, ONCE; LEFT EYE
     Route: 031
     Dates: start: 20151124, end: 20151124
  14. EYLEA [Suspect]
     Active Substance: AFLIBERCEPT
     Dosage: 1 DF, ONCE; BOTH EYES
     Route: 031
     Dates: start: 20170906, end: 20170906
  15. EYLEA [Suspect]
     Active Substance: AFLIBERCEPT
     Dosage: 1 DF, ONCE; LEFT EYE
     Route: 031
     Dates: start: 20160305, end: 20160305
  16. EYLEA [Suspect]
     Active Substance: AFLIBERCEPT
     Dosage: 1 DF, ONCE; LEFT EYE
     Route: 031
     Dates: start: 20160802, end: 20160802
  17. EYLEA [Suspect]
     Active Substance: AFLIBERCEPT
     Dosage: 1 DF, ONCE; LEFT EYE
     Route: 031
     Dates: start: 20170405, end: 20170405
  18. METOPROLOL. [Concomitant]
     Active Substance: METOPROLOL
     Indication: HYPERTENSION
     Dosage: 50 MG, BID
  19. EYLEA [Suspect]
     Active Substance: AFLIBERCEPT
     Dosage: 1 DF, ONCE; LEFT EYE
     Route: 031
     Dates: start: 20161005, end: 20161005

REACTIONS (6)
  - Product monitoring error [Unknown]
  - Product tampering [Unknown]
  - Overdose [Unknown]
  - Blindness [Recovering/Resolving]
  - Retinal artery thrombosis [Unknown]
  - Product prescribing issue [Unknown]

NARRATIVE: CASE EVENT DATE: 20180712
